FAERS Safety Report 10243129 (Version 1)
Quarter: 2014Q2

REPORT INFORMATION
  Report Type: Spontaneous
  Country: US (occurrence: None)
  Receive Date: 20140616
  Receipt Date: 20140616
  Transmission Date: 20141212
  Serious: Yes (Death)
  Sender: FDA-Public Use
  Company Number: UNT-2014-001895

PATIENT
  Age: 51 Year
  Sex: Female

DRUGS (2)
  1. REMODULIN (TREPROSTINIL SODIUM) INJECTION, 10MG/ML [Suspect]
     Indication: PULMONARY ARTERIAL HYPERTENSION
     Route: 058
     Dates: start: 20130214
  2. VELETRI (EPOPROSTENOL SODIUM) [Concomitant]

REACTIONS (1)
  - Right ventricular failure [None]
